FAERS Safety Report 12457077 (Version 3)
Quarter: 2017Q3

REPORT INFORMATION
  Report Type: Spontaneous
  Country: GB (occurrence: GB)
  Receive Date: 20160610
  Receipt Date: 20170801
  Transmission Date: 20171127
  Serious: Yes (Hospitalization, Disabling)
  Sender: FDA-Public Use
  Company Number: GB-BAYER-2016-108552

PATIENT
  Age: 70 Year
  Sex: Female
  Weight: 70.76 kg

DRUGS (4)
  1. CIPROFLOXACIN. [Suspect]
     Active Substance: CIPROFLOXACIN
     Indication: PNEUMONIA
     Dosage: UNK
     Route: 051
  2. CIPROFLOXACIN. [Suspect]
     Active Substance: CIPROFLOXACIN
     Indication: CYSTITIS
     Dosage: 500 MG, TOTAL
     Route: 048
     Dates: start: 20151106
  3. TEICOPLANIN [Concomitant]
     Active Substance: TEICOPLANIN
     Dosage: UNK
     Route: 051
  4. CIPROFLOXACIN BETAIN [Suspect]
     Active Substance: CIPROFLOXACIN
     Dosage: UNK
     Route: 042

REACTIONS (23)
  - Contusion [Not Recovered/Not Resolved]
  - Myositis [Unknown]
  - Pain [Unknown]
  - Vision blurred [Not Recovered/Not Resolved]
  - Dental caries [Not Recovered/Not Resolved]
  - Sjogren^s syndrome [Unknown]
  - Hyperhidrosis [Not Recovered/Not Resolved]
  - Mobility decreased [Recovering/Resolving]
  - Tinnitus [Not Recovered/Not Resolved]
  - Sepsis [Unknown]
  - Atrial fibrillation [Unknown]
  - Balance disorder [Not Recovered/Not Resolved]
  - Condition aggravated [Unknown]
  - Pruritus [Not Recovered/Not Resolved]
  - Abdominal pain upper [Not Recovered/Not Resolved]
  - Fine motor skill dysfunction [Not Recovered/Not Resolved]
  - Toxicity to various agents [Unknown]
  - Pain of skin [Not Recovered/Not Resolved]
  - Mass [Unknown]
  - Muscular weakness [Not Recovered/Not Resolved]
  - Nausea [Not Recovered/Not Resolved]
  - Skin discolouration [Not Recovered/Not Resolved]
  - Peripheral swelling [Recovering/Resolving]

NARRATIVE: CASE EVENT DATE: 20151106
